FAERS Safety Report 9360215 (Version 4)
Quarter: 2014Q2

REPORT INFORMATION
  Report Type: Spontaneous
  Country: US (occurrence: US)
  Receive Date: 20130621
  Receipt Date: 20140624
  Transmission Date: 20141212
  Serious: Yes (Other)
  Sender: FDA-Public Use
  Company Number: US-BAYER-2013-073292

PATIENT
  Age: 29 Year
  Sex: Female
  Weight: 92.97 kg

DRUGS (9)
  1. MIRENA [Suspect]
     Indication: CONTRACEPTION
     Dosage: 20 MCG/24HR, CONT
     Route: 015
     Dates: start: 20060420, end: 20110622
  2. MIRENA [Suspect]
     Indication: CONTRACEPTION
     Dosage: 20 MCG/24HR, CONT
     Route: 015
     Dates: start: 20110622, end: 201206
  3. DIFLUCAN [Concomitant]
     Dosage: UNK
     Dates: start: 2001, end: 2012
  4. MICROBID [Concomitant]
     Dosage: UNK
     Dates: start: 2001, end: 2012
  5. ZYRTEC [Concomitant]
     Dosage: UNK
     Dates: start: 2001, end: 2012
  6. PREDNISONE [Concomitant]
     Dosage: UNK
     Dates: start: 20090914
  7. MUPIROCIN [Concomitant]
  8. METRONIDAZOLE [Concomitant]
  9. PHENTERMINE [Concomitant]

REACTIONS (7)
  - Device dislocation [None]
  - Device misuse [None]
  - Pain [None]
  - Injury [None]
  - Device issue [None]
  - Procedural pain [None]
  - Post procedural discomfort [Not Recovered/Not Resolved]
